FAERS Safety Report 14317782 (Version 1)
Quarter: 2017Q4

REPORT INFORMATION
  Report Type: Spontaneous
  Country: KR (occurrence: KR)
  Receive Date: 20171222
  Receipt Date: 20171222
  Transmission Date: 20180321
  Serious: Yes (Other)
  Sender: FDA-Public Use
  Company Number: KR-PFIZER INC-2017531450

PATIENT
  Age: 80 Year
  Sex: Female

DRUGS (2)
  1. HERBEN [Suspect]
     Active Substance: DILTIAZEM HYDROCHLORIDE
     Dosage: 90 MG, 2X/DAY (IN THE MORNING AND EVENING)
     Route: 048
  2. LIPITOR [Suspect]
     Active Substance: ATORVASTATIN CALCIUM
     Dosage: 10 MG, UNK
     Route: 048
     Dates: start: 2001

REACTIONS (2)
  - Syncope [Unknown]
  - Blood pressure fluctuation [Unknown]

NARRATIVE: CASE EVENT DATE: 2014
